FAERS Safety Report 4872661-4 (Version None)
Quarter: 2006Q1

REPORT INFORMATION
  Report Type: 
  Country: None (occurrence: None)
  Receive Date: 20060103
  Receipt Date: 20051220
  Transmission Date: 20060701
  Serious: Yes (Death)
  Sender: FDA-Public Use
  Company Number: CA200512003700

PATIENT
  Sex: Male

DRUGS (1)
  1. ILETIN [Suspect]
     Indication: DIABETES MELLITUS

REACTIONS (4)
  - DIABETES MELLITUS [None]
  - DRUG HYPERSENSITIVITY [None]
  - LOCALISED OEDEMA [None]
  - PHARMACEUTICAL PRODUCT COMPLAINT [None]
